FAERS Safety Report 7083808-6 (Version None)
Quarter: 2010Q4

REPORT INFORMATION
  Report Type: 
  Country: None (occurrence: None)
  Receive Date: 20101104
  Receipt Date: 20101022
  Transmission Date: 20110411
  Serious: Yes (Hospitalization)
  Sender: FDA-Public Use
  Company Number: US-ACTELION-A-NJ2010-40386

PATIENT
  Sex: Male

DRUGS (2)
  1. BOSENTAN TABLET 125 MG US [Suspect]
     Indication: PULMONARY ARTERIAL HYPERTENSION
     Dosage: 125 MG, BID
     Route: 048
     Dates: start: 20080101, end: 20101012
  2. BOSENTAN TABLET 125 MG US [Suspect]
     Dosage: 62.5 MG, BID
     Route: 048
     Dates: start: 20080220, end: 20080101

REACTIONS (5)
  - BIOPSY LUNG [None]
  - CATHETERISATION CARDIAC [None]
  - DYSPNOEA EXERTIONAL [None]
  - OFF LABEL USE [None]
  - PNEUMOTHORAX [None]
